FAERS Safety Report 4439394-X (Version None)
Quarter: 2004Q3

REPORT INFORMATION
  Report Type: 
  Country: None (occurrence: None)
  Receive Date: 20040728
  Receipt Date: 20040528
  Transmission Date: 20050211
  Serious: No
  Sender: FDA-Public Use
  Company Number: USA040465481

PATIENT
  Age: 16 Year
  Sex: Male

DRUGS (1)
  1. STRATTERA [Suspect]
     Dosage: 160 MG/ONCE
     Dates: start: 20040419, end: 20040419

REACTIONS (3)
  - INTENTIONAL MISUSE [None]
  - INTENTIONAL OVERDOSE [None]
  - VOMITING [None]
